FAERS Safety Report 24638814 (Version 1)
Quarter: 2024Q4

REPORT INFORMATION
  Report Type: Spontaneous
  Country: US (occurrence: US)
  Receive Date: 20241119
  Receipt Date: 20241119
  Transmission Date: 20250114
  Serious: No
  Sender: PHARMALEX US CORPORATION
  Company Number: US-PharmaLex US Corporation-2165383

PATIENT
  Age: 51 Year
  Sex: Female

DRUGS (1)
  1. CYTALUX [Suspect]
     Active Substance: PAFOLACIANINE SODIUM
     Indication: Product used for unknown indication

REACTIONS (2)
  - Nausea [Unknown]
  - Vomiting [Unknown]
